FAERS Safety Report 7775022-3 (Version None)
Quarter: 2011Q3

REPORT INFORMATION
  Report Type: 
  Country: None (occurrence: None)
  Receive Date: 20110923
  Receipt Date: 20110919
  Transmission Date: 20111222
  Serious: Yes (Hospitalization)
  Sender: FDA-Public Use
  Company Number: DE-ABBOTT-11P-062-0856068-00

PATIENT
  Sex: Female
  Weight: 74.5 kg

DRUGS (1)
  1. HUMIRA [Suspect]
     Indication: RHEUMATOID ARTHRITIS

REACTIONS (6)
  - RIB FRACTURE [None]
  - HUMERUS FRACTURE [None]
  - TRANSFUSION REACTION [None]
  - CARPAL TUNNEL SYNDROME [None]
  - IRON DEFICIENCY [None]
  - MICROCYTIC ANAEMIA [None]
